FAERS Safety Report 7392100-1 (Version None)
Quarter: 2011Q2

REPORT INFORMATION
  Report Type: 
  Country: None (occurrence: None)
  Receive Date: 20110404
  Receipt Date: 20110325
  Transmission Date: 20111010
  Serious: Yes (Death)
  Sender: FDA-Public Use
  Company Number: A0773204A

PATIENT
  Age: 54 Year
  Sex: Male
  Weight: 109.1 kg

DRUGS (3)
  1. AVANDIA [Suspect]
     Indication: DIABETES MELLITUS
     Dosage: 8MG PER DAY
     Route: 048
     Dates: start: 20000101, end: 20050113
  2. GLUCOPHAGE [Concomitant]
  3. METFORMIN HCL [Concomitant]

REACTIONS (1)
  - MYOCARDIAL INFARCTION [None]
